FAERS Safety Report 7429850-4 (Version None)
Quarter: 2011Q2

REPORT INFORMATION
  Report Type: 
  Country: None (occurrence: None)
  Receive Date: 20110421
  Receipt Date: 20110303
  Transmission Date: 20111010
  Serious: Yes (Other)
  Sender: FDA-Public Use
  Company Number: US-BAYER-2011-006646

PATIENT
  Age: 69 Year
  Sex: Female
  Weight: 64 kg

DRUGS (12)
  1. TRASYLOL [Suspect]
     Indication: CORONARY ARTERY BYPASS
     Dosage: INITIAL TEST DOSE OF 1 ML
     Route: 042
     Dates: start: 20061019, end: 20061019
  2. ISOSORBIDE MONONITRATE [Concomitant]
     Dosage: 20 MG, QD
     Route: 048
  3. ATARAX [Concomitant]
     Dosage: 25 MG, QID
     Route: 048
  4. INSULIN [Concomitant]
     Dosage: 10 U, UNK
     Route: 042
     Dates: start: 20061019
  5. TRASYLOL [Suspect]
     Dosage: LOADING DOSE OF 200 ML FOLLOWED BY 50ML/HR INFUSION
     Route: 042
     Dates: start: 20061019, end: 20061019
  6. ACETYLSALICYLIC ACID SRT [Concomitant]
     Dosage: 81 MG, QD
     Route: 048
  7. VYTORIN [Concomitant]
     Dosage: 10/80/DAILY
     Route: 048
  8. LOPRESSOR [Concomitant]
     Dosage: 50 MG, QD
     Route: 048
  9. NITROGLYCERIN [Concomitant]
     Dosage: UNK UNK, PRN
     Route: 060
  10. COUMADIN [Concomitant]
     Dosage: 2.5 MG, PRN
     Route: 048
  11. NIFEDIPINE [Concomitant]
     Dosage: 90 MG, QD
     Route: 048
  12. HEPARIN [Concomitant]
     Dosage: 250000 U, UNK
     Route: 042
     Dates: start: 20061019

REACTIONS (9)
  - TRANSIENT ISCHAEMIC ATTACK [None]
  - CEREBROVASCULAR ACCIDENT [None]
  - PAIN [None]
  - DEPRESSION [None]
  - UNEVALUABLE EVENT [None]
  - INJURY [None]
  - EMOTIONAL DISTRESS [None]
  - RENAL FAILURE [None]
  - ANXIETY [None]
